FAERS Safety Report 15716403 (Version 2)
Quarter: 2019Q1

REPORT INFORMATION
  Report Type: Report from Study
  Country: IL (occurrence: IL)
  Receive Date: 20181213
  Receipt Date: 20190306
  Transmission Date: 20190417
  Serious: Yes (Other)
  Sender: FDA-Public Use
  Company Number: IL-TEVA-2018-IL-985551

PATIENT
  Age: 50 Year
  Sex: Female
  Weight: 72 kg

DRUGS (4)
  1. PROLOL [Concomitant]
     Indication: HYPERTENSION
     Dosage: 40 MILLIGRAM DAILY;
     Route: 048
     Dates: start: 2014
  2. MIRENA [Concomitant]
     Active Substance: LEVONORGESTREL
     Indication: CONTRACEPTION
     Dosage: CHANGED EVERY 5 YEARS
     Route: 015
     Dates: start: 2014
  3. RIZALT [Concomitant]
     Indication: MIGRAINE
     Dosage: PRN
     Route: 048
     Dates: start: 2013
  4. FREMANEZUMAB [Suspect]
     Active Substance: FREMANEZUMAB
     Indication: MIGRAINE
     Dosage: THE PATIENT RECEIVED THE LAST DOSE ON 27-AUG-2018
     Route: 058
     Dates: start: 20180606, end: 20180827

REACTIONS (1)
  - Breast cancer female [Not Recovered/Not Resolved]

NARRATIVE: CASE EVENT DATE: 20181204
